FAERS Safety Report 4289524-8 (Version None)
Quarter: 2004Q1

REPORT INFORMATION
  Report Type: 
  Country: None (occurrence: None)
  Receive Date: 20040205
  Receipt Date: 20040123
  Transmission Date: 20041129
  Serious: Yes (Disabling, Other)
  Sender: FDA-Public Use
  Company Number: 04-01-0127

PATIENT
  Age: 35 Year
  Sex: Female

DRUGS (2)
  1. PACLITAXEL [Suspect]
     Indication: OVARIAN CANCER
     Dosage: 175MG/MQ INTRAVENOUS
     Route: 042
  2. CARBOPLATIN [Suspect]
     Indication: OVARIAN CANCER
     Dosage: AUC=6 INTRAVENOUS
     Route: 042

REACTIONS (5)
  - DEAFNESS NEUROSENSORY [None]
  - HAEMOGLOBIN DECREASED [None]
  - NAUSEA [None]
  - SUDDEN HEARING LOSS [None]
  - WHITE BLOOD CELL COUNT DECREASED [None]
